FAERS Safety Report 5898802-8 (Version None)
Quarter: 2008Q3

REPORT INFORMATION
  Report Type: 
  Country: None (occurrence: None)
  Receive Date: 20080925
  Receipt Date: 20080626
  Transmission Date: 20090109
  Serious: No
  Sender: FDA-Public Use
  Company Number: A0734984A

PATIENT
  Age: 38 Year
  Sex: Male

DRUGS (2)
  1. WELLBUTRIN XL [Suspect]
     Indication: DEPRESSION
     Dosage: 150MG PER DAY
     Route: 048
  2. ADDERALL 10 [Suspect]
     Indication: ATTENTION DEFICIT/HYPERACTIVITY DISORDER
     Dosage: 30MG PER DAY
     Route: 065

REACTIONS (9)
  - ASTHENIA [None]
  - BLEPHAROSPASM [None]
  - DIZZINESS [None]
  - DYSSTASIA [None]
  - FLUSHING [None]
  - HEADACHE [None]
  - PARAESTHESIA [None]
  - PARAESTHESIA ORAL [None]
  - SENSORY DISTURBANCE [None]
